FAERS Safety Report 24300767 (Version 1)
Quarter: 2024Q3

REPORT INFORMATION
  Report Type: Spontaneous
  Country: CH (occurrence: CH)
  Receive Date: 20240910
  Receipt Date: 20240910
  Transmission Date: 20241017
  Serious: Yes (Hospitalization, Other)
  Sender: NOVO NORDISK
  Company Number: CH-NOVOPROD-1272337

PATIENT
  Age: 42 Year
  Sex: Female
  Weight: 102 kg

DRUGS (2)
  1. WEGOVY [Suspect]
     Active Substance: SEMAGLUTIDE
     Indication: Obesity
     Dosage: 0.25 MG, QW
     Route: 058
     Dates: start: 20240315
  2. WEGOVY [Suspect]
     Active Substance: SEMAGLUTIDE
     Dosage: 0.5 MG, QW
     Route: 058
     Dates: start: 202405, end: 20240517

REACTIONS (2)
  - Cholecystitis [Recovered/Resolved]
  - Cholesterosis [Recovered/Resolved]

NARRATIVE: CASE EVENT DATE: 20240515
